FAERS Safety Report 9439114 (Version 1)
Quarter: 2013Q3

REPORT INFORMATION
  Report Type: Report from Study
  Country: US (occurrence: US)
  Receive Date: 20130802
  Receipt Date: 20130802
  Transmission Date: 20140515
  Serious: Yes (Hospitalization)
  Sender: FDA-Public Use
  Company Number: US-ABBOTT-13P-163-1124774-00

PATIENT
  Age: 45 Year
  Sex: Female

DRUGS (1)
  1. HUMIRA [Suspect]
     Indication: PSORIASIS
     Dates: start: 201304, end: 201307

REACTIONS (9)
  - Pneumonia legionella [Unknown]
  - Pneumonia [Unknown]
  - Respiratory failure [Unknown]
  - Incoherent [Unknown]
  - Loss of consciousness [Unknown]
  - Psoriasis [Unknown]
  - Influenza like illness [Unknown]
  - Dyspnoea [Unknown]
  - Asthenia [Unknown]
